FAERS Safety Report 10360845 (Version 3)
Quarter: 2014Q3

REPORT INFORMATION
  Report Type: Spontaneous
  Country: US (occurrence: US)
  Receive Date: 20140804
  Receipt Date: 20140903
  Transmission Date: 20150326
  Serious: Yes (Hospitalization, Other)
  Sender: FDA-Public Use
  Company Number: US-009507513-2008-187930-NL

PATIENT
  Sex: Female
  Weight: 70.3 kg

DRUGS (5)
  1. NUVARING [Suspect]
     Active Substance: ETHINYL ESTRADIOL\ETONOGESTREL
     Dosage: UNK
     Route: 067
     Dates: start: 20061222
  2. AVELOX [Concomitant]
     Active Substance: MOXIFLOXACIN HYDROCHLORIDE
     Indication: SINUSITIS
     Dates: start: 20061102, end: 20061121
  3. NUVARING [Suspect]
     Active Substance: ETHINYL ESTRADIOL\ETONOGESTREL
     Indication: PRODUCT USED FOR UNKNOWN INDICATION
     Dosage: CONTINUING: NO
     Route: 067
     Dates: start: 200607, end: 20061201
  4. BIAXIN [Concomitant]
     Active Substance: CLARITHROMYCIN
     Indication: SINUSITIS
     Dates: start: 20061122, end: 200612
  5. PREDNISOLONE. [Concomitant]
     Active Substance: PREDNISOLONE
     Indication: SINUSITIS
     Dates: start: 20061122

REACTIONS (11)
  - Generalised tonic-clonic seizure [Recovered/Resolved]
  - Migraine [Unknown]
  - Visual acuity reduced [Unknown]
  - Haemorrhagic cerebral infarction [Recovered/Resolved with Sequelae]
  - Cognitive disorder [Not Recovered/Not Resolved]
  - Headache [Unknown]
  - Sinusitis [Not Recovered/Not Resolved]
  - Loss of consciousness [Unknown]
  - Transverse sinus thrombosis [Recovered/Resolved]
  - Deep vein thrombosis [Unknown]
  - Amnesia [Unknown]

NARRATIVE: CASE EVENT DATE: 2006
